FAERS Safety Report 5171222-X (Version None)
Quarter: 2006Q4

REPORT INFORMATION
  Report Type: 
  Country: None (occurrence: None)
  Receive Date: 20061213
  Receipt Date: 20061205
  Transmission Date: 20070319
  Serious: Yes (Hospitalization)
  Sender: FDA-Public Use
  Company Number: FR-BRISTOL-MYERS SQUIBB COMPANY-13601042

PATIENT
  Age: 25 Year
  Sex: Male

DRUGS (3)
  1. CYCLOSPORINE [Suspect]
     Indication: RENAL TRANSPLANT
     Route: 048
     Dates: start: 20061023
  2. CORTANCYL [Concomitant]
     Dates: start: 20061022
  3. MYCOPHENOLATE MOFETIL [Concomitant]
     Dates: start: 20061019

REACTIONS (3)
  - DIABETES MELLITUS [None]
  - HYPERTHYROIDISM [None]
  - PYELONEPHRITIS ACUTE [None]
